FAERS Safety Report 6490003-8 (Version None)
Quarter: 2009Q4

REPORT INFORMATION
  Report Type: 
  Country: None (occurrence: None)
  Receive Date: 20091211
  Receipt Date: 20091202
  Transmission Date: 20100525
  Serious: Yes (Other)
  Sender: FDA-Public Use
  Company Number: US-WYE-H12452709

PATIENT
  Age: 58 Year
  Sex: Female
  Weight: 54.48 kg

DRUGS (2)
  1. ADVIL PM [Suspect]
     Indication: HEADACHE
     Dosage: 2 CAPLETS 1 TIME
     Route: 048
     Dates: start: 20091122, end: 20091122
  2. METFORMIN HCL [Concomitant]
     Indication: DIABETES MELLITUS
     Dosage: UNKNOWN AMOUNT DAILY AT BEDTIME
     Route: 048

REACTIONS (3)
  - BLINDNESS [None]
  - BLOOD GLUCOSE INCREASED [None]
  - DIZZINESS [None]
